FAERS Safety Report 13758581 (Version 1)
Quarter: 2017Q3

REPORT INFORMATION
  Report Type: Spontaneous
  Country: US (occurrence: US)
  Receive Date: 20170716
  Receipt Date: 20170716
  Transmission Date: 20171127
  Serious: Yes (Other)
  Sender: FDA-Public Use
  Company Number: None

PATIENT
  Age: 59 Year
  Sex: Female
  Weight: 83.25 kg

DRUGS (17)
  1. ESTER-C [Concomitant]
     Active Substance: CALCIUM\VITAMINS
  2. ASTEPRO [Concomitant]
     Active Substance: AZELASTINE HYDROCHLORIDE
  3. VITAMIN A [Concomitant]
     Active Substance: VITAMIN A
  4. VITAMIN D3 [Concomitant]
     Active Substance: CHOLECALCIFEROL
  5. MAXALT-MLT [Concomitant]
     Active Substance: RIZATRIPTAN BENZOATE
  6. CETIRIZINE [Concomitant]
     Active Substance: CETIRIZINE HYDROCHLORIDE
  7. ACETYL-L-CARNITINE [Concomitant]
  8. ALPHA LIPOIC ACID [Concomitant]
     Active Substance: .ALPHA.-LIPOIC ACID
  9. DESOXIMETASONE OINTMENT [Suspect]
     Active Substance: DESOXIMETASONE
     Indication: LICHEN SCLEROSUS
     Dosage: QUANTITY:1 PEA-SIZE AMOUNT;?
     Route: 061
     Dates: start: 20170310, end: 20170421
  10. TENS [Concomitant]
  11. COQ10 [Concomitant]
     Active Substance: UBIDECARENONE
  12. VITAMIN B COMPLEX [Concomitant]
     Active Substance: CYANOCOBALAMIN\DEXPANTHENOL\NIACINAMIDE\PYRIDOXINE HYDROCHLORIDE\RIBOFLAVIN 5^-PHOSPHATE SODIUM\THIAMINE HYDROCHLORIDE\VITAMIN B COMPLEX
  13. E [Concomitant]
  14. XOPENEX [Concomitant]
     Active Substance: LEVALBUTEROL HYDROCHLORIDE
  15. FEXOFENADINE [Concomitant]
     Active Substance: FEXOFENADINE\FEXOFENADINE HYDROCHLORIDE
  16. MUCINEX [Concomitant]
     Active Substance: GUAIFENESIN
  17. MALIC ACID [Concomitant]
     Active Substance: MALIC ACID

REACTIONS (3)
  - Vulvovaginal swelling [None]
  - Urine flow decreased [None]
  - Labia enlarged [None]

NARRATIVE: CASE EVENT DATE: 20170420
